FAERS Safety Report 15530663 (Version 2)
Quarter: 2018Q4

REPORT INFORMATION
  Report Type: Spontaneous
  Country: US (occurrence: US)
  Receive Date: 20181018
  Receipt Date: 20181025
  Transmission Date: 20190205
  Serious: Yes (Other)
  Sender: FDA-Public Use
  Company Number: US-FRESENIUS KABI-FK201810751

PATIENT
  Sex: Male
  Weight: 59 kg

DRUGS (2)
  1. HEPARIN SODIUM INJECTION, USP [Suspect]
     Active Substance: HEPARIN SODIUM
     Indication: THROMBOSIS PROPHYLAXIS
     Dosage: ON 15JUN2018 AT 1347, THE LAST DOSE ADMINISTERED.
     Route: 058
     Dates: end: 20180615
  2. HEPARIN SODIUM INJECTION, USP [Suspect]
     Active Substance: HEPARIN SODIUM
     Indication: THROMBOSIS PROPHYLAXIS
     Dosage: ON 15JUN2018 AT 1347, THE LAST DOSE ADMINISTERED.
     Route: 058
     Dates: end: 20180615

REACTIONS (2)
  - Drug effect increased [Recovered/Resolved]
  - Extradural haematoma [Unknown]
